FAERS Safety Report 5742889-X (Version None)
Quarter: 2008Q2

REPORT INFORMATION
  Report Type: 
  Country: None (occurrence: None)
  Receive Date: 20080515
  Receipt Date: 20080515
  Transmission Date: 20081010
  Serious: No
  Sender: FDA-Public Use
  Company Number: None

PATIENT
  Age: 80 Year
  Sex: Female

DRUGS (3)
  1. DIGOXIN-DIGITEK-TABS 0.25MG AMIDE-BERTEK- [Suspect]
     Indication: CARDIAC DISORDER
     Dosage: 1 DAILY PO
     Route: 048
     Dates: start: 20080212, end: 20080325
  2. DIGOXIN-DIGITEK-TABS 0.25MG AMIDE-BERTEK- [Suspect]
     Indication: CARDIAC DISORDER
     Dosage: 1 DAILY PO
     Route: 048
     Dates: start: 20080325, end: 20080509
  3. DIGOXIN-DIGITEK-TABS 0.25MG AMIDE-BERTEK- [Suspect]

REACTIONS (3)
  - ANOREXIA [None]
  - HYPOTENSION [None]
  - PHARMACEUTICAL PRODUCT COMPLAINT [None]
